FAERS Safety Report 5425584-6 (Version None)
Quarter: 2007Q3

REPORT INFORMATION
  Report Type: 
  Country: None (occurrence: None)
  Receive Date: 20070824
  Receipt Date: 20070810
  Transmission Date: 20080115
  Serious: Yes (Hospitalization)
  Sender: FDA-Public Use
  Company Number: JP-PFIZER INC-2007065374

PATIENT
  Sex: Male

DRUGS (5)
  1. XALATAN [Suspect]
     Indication: GLAUCOMA
     Dosage: DAILY DOSE:1DROP
     Route: 031
  2. XALATAN [Suspect]
     Indication: VISUAL FIELD DEFECT
  3. DEPAS [Concomitant]
     Route: 048
  4. AMLODIPINE [Concomitant]
     Route: 048
  5. ZANTAC 150 [Concomitant]
     Route: 048

REACTIONS (2)
  - GALLBLADDER OPERATION [None]
  - PAROSMIA [None]
